FAERS Safety Report 5547664-7 (Version None)
Quarter: 2007Q4

REPORT INFORMATION
  Report Type: 
  Country: None (occurrence: None)
  Receive Date: 20071211
  Receipt Date: 20071206
  Transmission Date: 20080405
  Serious: Yes (Life-Threatening, Hospitalization)
  Sender: FDA-Public Use
  Company Number: DE-BOEHRINGER INGELHEIM PHARMACEUTICALS, INC.-2007-DE-07199DE

PATIENT
  Sex: Male

DRUGS (10)
  1. SIFROL [Suspect]
     Indication: PARKINSON'S DISEASE
     Route: 048
     Dates: start: 20070801
  2. SIFROL [Suspect]
     Route: 048
     Dates: start: 20070926
  3. MADOPAR T 125 [Concomitant]
     Indication: PARKINSON'S DISEASE
     Dosage: LEVODOPA 100 MG/BENSERAZIDE 25 MG/3 PER DAY
     Route: 048
     Dates: start: 20070401
  4. ASS 300 [Concomitant]
  5. NORVASC [Concomitant]
  6. L-THYROXIN [Concomitant]
  7. DIOVAN HCT [Concomitant]
  8. AMARYL [Concomitant]
  9. MIRTAZAPINE [Concomitant]
  10. INSULIN [Concomitant]

REACTIONS (1)
  - RESPIRATORY ALKALOSIS [None]
